FAERS Safety Report 21055952 (Version 1)
Quarter: 2022Q3

REPORT INFORMATION
  Report Type: Spontaneous
  Country: US (occurrence: None)
  Receive Date: 20220708
  Receipt Date: 20220708
  Transmission Date: 20221026
  Serious: No
  Sender: FDA-Public Use
  Company Number: US-VistaPharm, Inc.-VER202203-000269

PATIENT
  Age: 68 Year
  Sex: Male
  Weight: 81.65 kg

DRUGS (3)
  1. METHADONE HYDROCHLORIDE [Suspect]
     Active Substance: METHADONE HYDROCHLORIDE
     Indication: Pain
     Dosage: 10 MG (UP TO 7)
     Route: 065
  2. GENOTROPIN [Concomitant]
     Active Substance: SOMATROPIN
     Indication: Blood growth hormone decreased
     Dosage: 4 CLICKS INJECTED
     Route: 065
  3. TESTOSTERONE [Concomitant]
     Active Substance: TESTOSTERONE
     Indication: Blood testosterone decreased
     Dosage: 4 PUMPS
     Route: 061

REACTIONS (1)
  - Hormone level abnormal [Unknown]
